FAERS Safety Report 5024517-4 (Version None)
Quarter: 2006Q2

REPORT INFORMATION
  Report Type: 
  Country: None (occurrence: None)
  Receive Date: 20060613
  Receipt Date: 20060605
  Transmission Date: 20061013
  Serious: Yes (Other)
  Sender: FDA-Public Use
  Company Number: US-JNJFOC-20060307155

PATIENT
  Sex: Female
  Weight: 72.58 kg

DRUGS (6)
  1. ORTHO EVRA [Suspect]
     Indication: CONTRACEPTION
     Route: 062
     Dates: start: 20040501, end: 20050501
  2. ADDERALL 10 [Suspect]
  3. ADDERALL 10 [Suspect]
  4. ADDERALL 10 [Suspect]
  5. ADDERALL 10 [Suspect]
     Indication: DRUG USE FOR UNKNOWN INDICATION
  6. LEVOXYL [Concomitant]
     Indication: THYROID DISORDER

REACTIONS (7)
  - BLINDNESS [None]
  - CHEST PAIN [None]
  - IRRITABILITY [None]
  - NARCOLEPSY [None]
  - NAUSEA [None]
  - OLIGOMENORRHOEA [None]
  - POLLAKIURIA [None]
